FAERS Safety Report 17953839 (Version 1)
Quarter: 2020Q2

REPORT INFORMATION
  Report Type: Spontaneous
  Country: HR (occurrence: HR)
  Receive Date: 20200628
  Receipt Date: 20200628
  Transmission Date: 20200714
  Serious: Yes (Other)
  Sender: FDA-Public Use
  Company Number: HR-ABBVIE-20K-216-3460061-00

PATIENT
  Age: 68 Year
  Sex: Male

DRUGS (5)
  1. RITUXIMAB. [Suspect]
     Active Substance: RITUXIMAB
     Indication: PRODUCT USED FOR UNKNOWN INDICATION
     Route: 065
     Dates: start: 20200224
  2. VENETOCLAX. [Suspect]
     Active Substance: VENETOCLAX
     Indication: CHRONIC LYMPHOCYTIC LEUKAEMIA
     Route: 048
     Dates: start: 20200224, end: 20200525
  3. VENETOCLAX. [Suspect]
     Active Substance: VENETOCLAX
     Route: 048
     Dates: start: 20200601
  4. RITUXIMAB. [Suspect]
     Active Substance: RITUXIMAB
     Dosage: 1ST CYCLE
     Route: 042
     Dates: start: 20200330
  5. RITUXIMAB. [Suspect]
     Active Substance: RITUXIMAB
     Dosage: 2ND CYCLE
     Route: 065

REACTIONS (2)
  - Neutropenia [Unknown]
  - Bronchitis [Unknown]

NARRATIVE: CASE EVENT DATE: 20200525
